FAERS Safety Report 7355869-8 (Version None)
Quarter: 2011Q1

REPORT INFORMATION
  Report Type: 
  Country: None (occurrence: None)
  Receive Date: 20110307
  Receipt Date: 20110223
  Transmission Date: 20110831
  Serious: Yes (Disabling)
  Sender: FDA-Public Use
  Company Number: 2011MA001704

PATIENT
  Age: 44 Year
  Sex: Male

DRUGS (2)
  1. SEROQUEL [Suspect]
  2. GABAPENTIN [Suspect]

REACTIONS (6)
  - AGGRESSION [None]
  - DECREASED ACTIVITY [None]
  - SELF-MEDICATION [None]
  - IMPAIRED DRIVING ABILITY [None]
  - HYPOKINESIA [None]
  - DISTURBANCE IN ATTENTION [None]
